FAERS Safety Report 23967789 (Version 1)
Quarter: 2024Q2

REPORT INFORMATION
  Report Type: Spontaneous
  Country: US (occurrence: US)
  Receive Date: 20240612
  Receipt Date: 20240612
  Transmission Date: 20240715
  Serious: No
  Sender: FDA-Public Use
  Company Number: US-SA-SAC20240611000173

PATIENT
  Age: 38 Year
  Sex: Female
  Weight: 122.47 kg

DRUGS (1)
  1. DUPIXENT [Suspect]
     Active Substance: DUPILUMAB
     Indication: Sinus polyp
     Dosage: 300 MG, QOW
     Route: 058
     Dates: start: 2023

REACTIONS (1)
  - Nasal septal operation [Recovered/Resolved]

NARRATIVE: CASE EVENT DATE: 20240307
